FAERS Safety Report 8085492-1 (Version None)
Quarter: 2012Q1

REPORT INFORMATION
  Report Type: 
  Country: None (occurrence: None)
  Receive Date: 20120128
  Receipt Date: 20110420
  Transmission Date: 20120608
  Serious: Yes (Hospitalization, Other)
  Sender: FDA-Public Use
  Company Number: US-ABBOTT-11P-163-0709442-00

PATIENT
  Sex: Male

DRUGS (2)
  1. HUMIRA [Suspect]
     Indication: PSORIATIC ARTHROPATHY
     Dates: start: 20070101, end: 20080101
  2. HUMIRA [Suspect]
     Route: 058
     Dates: start: 20100101

REACTIONS (3)
  - CORONARY ARTERY BYPASS [None]
  - CORONARY ARTERIAL STENT INSERTION [None]
  - DYSPNOEA [None]
